FAERS Safety Report 17370442 (Version 1)
Quarter: 2020Q1

REPORT INFORMATION
  Report Type: Spontaneous
  Country: US (occurrence: US)
  Receive Date: 20200205
  Receipt Date: 20200205
  Transmission Date: 20200409
  Serious: Yes (Life-Threatening, Hospitalization, Other)
  Sender: FDA-Public Use
  Company Number: US-HIKMA PHARMACEUTICALS USA INC.-US-H14001-20-50516

PATIENT
  Age: 37 Year
  Sex: Female

DRUGS (4)
  1. FENTANYL. [Suspect]
     Active Substance: FENTANYL
     Indication: SPINAL ANAESTHESIA
     Route: 065
  2. ATROPINE. [Suspect]
     Active Substance: ATROPINE
     Indication: BRADYCARDIA
     Route: 065
  3. BUPIVACAINE. [Suspect]
     Active Substance: BUPIVACAINE
     Indication: SPINAL ANAESTHESIA
     Route: 065
  4. ADRENALINE [Suspect]
     Active Substance: EPINEPHRINE
     Indication: BRADYCARDIA
     Route: 065

REACTIONS (5)
  - Bradycardia [Recovered/Resolved]
  - Peripartum cardiomyopathy [Recovering/Resolving]
  - Blood pressure immeasurable [Recovered/Resolved]
  - Maternal exposure during pregnancy [Recovered/Resolved]
  - Somnolence [Recovering/Resolving]
